FAERS Safety Report 7244951-1 (Version None)
Quarter: 2011Q1

REPORT INFORMATION
  Report Type: 
  Country: None (occurrence: None)
  Receive Date: 20110118
  Receipt Date: 20110107
  Transmission Date: 20110831
  Serious: Yes (Hospitalization)
  Sender: FDA-Public Use
  Company Number: DSA_42685_2010

PATIENT
  Age: 60 Year
  Sex: Male

DRUGS (6)
  1. PLAVIX [Concomitant]
  2. PARIET [Concomitant]
  3. DILTIAZEM HCL [Suspect]
     Indication: ANGINA UNSTABLE
     Dosage: (200 MG QD ORAL) ; (100 MG QD ORAL)
     Route: 048
     Dates: start: 20100107, end: 20100115
  4. DILTIAZEM HCL [Suspect]
     Indication: ANGINA UNSTABLE
     Dosage: (200 MG QD ORAL) ; (100 MG QD ORAL)
     Route: 048
     Dates: start: 20100201, end: 20100201
  5. LIPITOR [Concomitant]
  6. ASPIRIN [Suspect]
     Indication: ANGINA UNSTABLE
     Dosage: (100 MG QD ORAL)
     Route: 048
     Dates: start: 20100107

REACTIONS (8)
  - ALANINE AMINOTRANSFERASE INCREASED [None]
  - LIVER DISORDER [None]
  - ASPARTATE AMINOTRANSFERASE INCREASED [None]
  - SKIN EXFOLIATION [None]
  - PIGMENTATION DISORDER [None]
  - DRUG ERUPTION [None]
  - ACUTE GENERALISED EXANTHEMATOUS PUSTULOSIS [None]
  - SKIN TEST POSITIVE [None]
